FAERS Safety Report 26107238 (Version 2)
Quarter: 2025Q4

REPORT INFORMATION
  Report Type: Spontaneous
  Country: EU (occurrence: EU)
  Receive Date: 20251201
  Receipt Date: 20251204
  Transmission Date: 20260117
  Serious: No
  Sender: TEVA
  Company Number: None

PATIENT
  Age: 62 Year
  Sex: Female

DRUGS (3)
  1. AZITHROMYCIN [Suspect]
     Active Substance: AZITHROMYCIN
     Indication: Asthma
     Dosage: ONE PER DAY FOR SIX DAYS; AZITHROMYCIN (7019A)
     Route: 048
     Dates: start: 20251013
  2. FOSTER [Suspect]
     Active Substance: BECLOMETHASONE\FORMOTEROL
     Indication: Bronchitis
     Dosage: FOSTER 100 MICROGRAMS /6 MICROGRAMS/PULSE INHALATION SOLUTION IN PRESSURIZED CONTAINER, 1 INHALER...
     Route: 065
     Dates: start: 20251009
  3. LEVOTHYROXINE SODIUM [Concomitant]
     Active Substance: LEVOTHYROXINE SODIUM
     Indication: Autoimmune thyroiditis
     Dosage: ON AN EMPTY STOMACH ONE, 100 TABLETS
     Route: 065

REACTIONS (3)
  - Tooth loss [Not Recovered/Not Resolved]
  - Gingival pain [Not Recovered/Not Resolved]
  - Tooth discolouration [Not Recovered/Not Resolved]

NARRATIVE: CASE EVENT DATE: 20251101
